FAERS Safety Report 22950308 (Version 3)
Quarter: 2023Q4

REPORT INFORMATION
  Report Type: Spontaneous
  Country: US (occurrence: US)
  Receive Date: 20230915
  Receipt Date: 20231106
  Transmission Date: 20240110
  Serious: Yes (Hospitalization, Other)
  Sender: FDA-Public Use
  Company Number: US-PFIZER INC-PV202300155560

PATIENT
  Age: 52 Year
  Sex: Female
  Weight: 54.422 kg

DRUGS (2)
  1. DEPO-PROVERA [Suspect]
     Active Substance: MEDROXYPROGESTERONE ACETATE
     Indication: Hormone level abnormal
     Dosage: 1 DF, EVERY 3 MONTHS
     Dates: start: 1997
  2. DEPO-PROVERA [Suspect]
     Active Substance: MEDROXYPROGESTERONE ACETATE
     Indication: Menstrual disorder

REACTIONS (7)
  - Neuroendocrine carcinoma [Not Recovered/Not Resolved]
  - Metastases to liver [Unknown]
  - Pain [Unknown]
  - Hormone level abnormal [Unknown]
  - Menstrual disorder [Unknown]
  - Menopause delayed [Unknown]
  - Endocrine neoplasm [Unknown]

NARRATIVE: CASE EVENT DATE: 20221220
